FAERS Safety Report 12319671 (Version 1)
Quarter: 2016Q2

REPORT INFORMATION
  Report Type: Spontaneous
  Country: US (occurrence: US)
  Receive Date: 20160429
  Receipt Date: 20160429
  Transmission Date: 20160815
  Serious: Yes (Other)
  Sender: FDA-Public Use
  Company Number: US-FRESENIUS KABI-FK201602309

PATIENT
  Age: 52 Year
  Sex: Female

DRUGS (3)
  1. INDOMETHACIN (MANUFACTURER UNKNOWN) [Suspect]
     Active Substance: INDOMETHACIN
     Indication: HEADACHE
     Route: 065
     Dates: start: 200807, end: 2010
  2. MELATONIN [Concomitant]
     Active Substance: MELATONIN
     Indication: PRODUCT USED FOR UNKNOWN INDICATION
     Route: 065
  3. MELATONIN [Concomitant]
     Active Substance: MELATONIN
     Route: 065

REACTIONS (1)
  - Gastrointestinal ulcer haemorrhage [Unknown]

NARRATIVE: CASE EVENT DATE: 2010
